FAERS Safety Report 8600575-2 (Version None)
Quarter: 2012Q3

REPORT INFORMATION
  Report Type: 
  Country: None (occurrence: None)
  Receive Date: 20120808
  Receipt Date: 20120808
  Transmission Date: 20120928
  Serious: Yes (Other)
  Sender: FDA-Public Use
  Company Number: None

PATIENT
  Age: 78 Year
  Sex: Female
  Weight: 54.4316 kg

DRUGS (1)
  1. TYLENOL (CAPLET) [Suspect]
     Indication: PAIN
     Dosage: 2 TIMES SEVERAL TIMES  : 1 TIME SEVERAL TIMES  FIRST 2 WEEKS OF JULY  THIRD WEEK OF JULY

REACTIONS (1)
  - DIARRHOEA [None]
